FAERS Safety Report 26200656 (Version 1)
Quarter: 2025Q4

REPORT INFORMATION
  Report Type: Report from Study
  Country: US (occurrence: US)
  Receive Date: 20251225
  Receipt Date: 20251225
  Transmission Date: 20260117
  Serious: Yes (Other)
  Sender: ABBVIE
  Company Number: US-ABBVIE-6604102

PATIENT
  Age: 56 Year
  Sex: Male

DRUGS (1)
  1. CREON [Suspect]
     Active Substance: PANCRELIPASE AMYLASE\PANCRELIPASE LIPASE\PANCRELIPASE PROTEASE
     Indication: Product used for unknown indication
     Route: 048
     Dates: start: 20250710

REACTIONS (3)
  - Bile duct stent insertion [Recovered/Resolved]
  - Weight gain poor [Not Recovered/Not Resolved]
  - Liver operation [Recovered/Resolved]

NARRATIVE: CASE EVENT DATE: 20250701
